FAERS Safety Report 4779785-0 (Version None)
Quarter: 2005Q3

REPORT INFORMATION
  Report Type: 
  Country: None (occurrence: None)
  Receive Date: 20050927
  Receipt Date: 20050425
  Transmission Date: 20060218
  Serious: Yes (Hospitalization, Disabling)
  Sender: FDA-Public Use
  Company Number: 200513525US

PATIENT
  Age: 55 Year
  Sex: Female
  Weight: 55.8 kg

DRUGS (3)
  1. DOCETAXEL [Suspect]
     Indication: NEOPLASM MALIGNANT
     Route: 042
     Dates: start: 20050418, end: 20050418
  2. CETUXIMAB [Suspect]
     Indication: NEOPLASM MALIGNANT
     Route: 042
     Dates: start: 20050418, end: 20050418
  3. RADIATION THERAPY [Suspect]
     Indication: NEOPLASM MALIGNANT
     Dosage: DOSE:  2CGY    (6600 CGY TOTAL DOSE GIVEN)
     Dates: end: 20050518

REACTIONS (11)
  - ABSCESS NECK [None]
  - DERMATITIS [None]
  - DRUG INTERACTION [None]
  - INFECTION [None]
  - MOUTH HAEMORRHAGE [None]
  - MUCOSAL INFLAMMATION [None]
  - RASH ERYTHEMATOUS [None]
  - SCAB [None]
  - SKIN HAEMORRHAGE [None]
  - SKIN REACTION [None]
  - SWELLING FACE [None]
